FAERS Safety Report 7629814-1 (Version None)
Quarter: 2011Q3

REPORT INFORMATION
  Report Type: 
  Country: None (occurrence: None)
  Receive Date: 20110722
  Receipt Date: 20110713
  Transmission Date: 20111222
  Serious: Yes (Other)
  Sender: FDA-Public Use
  Company Number: CA-GENZYME-THYM-1002612

PATIENT
  Sex: Female

DRUGS (1)
  1. THYMOGLOBULIN [Suspect]
     Indication: PROPHYLAXIS AGAINST TRANSPLANT REJECTION
     Dosage: UNK
     Route: 042

REACTIONS (4)
  - TRANSPLANT REJECTION [None]
  - MATERNAL EXPOSURE BEFORE PREGNANCY [None]
  - PANCREAS TRANSPLANT REJECTION [None]
  - KIDNEY TRANSPLANT REJECTION [None]
